FAERS Safety Report 10444919 (Version 1)
Quarter: 2014Q3

REPORT INFORMATION
  Report Type: Spontaneous
  Country: US (occurrence: US)
  Receive Date: 20140910
  Receipt Date: 20140910
  Transmission Date: 20150326
  Serious: Yes (Other)
  Sender: FDA-Public Use
  Company Number: PHEH2014US017867

PATIENT
  Sex: Female

DRUGS (18)
  1. DIOVAN [Concomitant]
     Active Substance: VALSARTAN
     Dosage: UNK UKN, UNK
  2. ADVEL [Concomitant]
     Dosage: UNK , Q6H
  3. CALCIUM [Concomitant]
     Active Substance: CALCIUM
     Dosage: UNK UKN, TID
  4. VALPROIC ACID. [Concomitant]
     Active Substance: VALPROIC ACID
     Dosage: 250 MG, UNK
  5. NASONEX [Concomitant]
     Active Substance: MOMETASONE FUROATE
     Dosage: UNK UKN, UNK
  6. TEGRETOL [Suspect]
     Active Substance: CARBAMAZEPINE
     Indication: GENERALISED TONIC-CLONIC SEIZURE
     Dosage: 200 MG, QID
     Dates: start: 1976
  7. CARBAMAZEPINE. [Suspect]
     Active Substance: CARBAMAZEPINE
     Dosage: UNK UKN, UNK
  8. PRAVASTATIN [Concomitant]
     Active Substance: PRAVASTATIN\PRAVASTATIN SODIUM
     Dosage: 10 MG, UNK
  9. DULERA [Concomitant]
     Active Substance: FORMOTEROL FUMARATE DIHYDRATE\MOMETASONE FUROATE
     Dosage: UNK UKN, UNK
  10. SULFASALAZINE DELAYED-RELEASE [Concomitant]
     Active Substance: SULFASALAZINE
     Dosage: 500 MG, BID
  11. TOPIRAMATE. [Concomitant]
     Active Substance: TOPIRAMATE
     Dosage: UNK UKN, UNK
  12. ENBREL [Concomitant]
     Active Substance: ETANERCEPT
     Dosage: 50 MG, UNK
  13. MECLIZINE [Concomitant]
     Active Substance: MECLIZINE\MECLIZINE HYDROCHLORIDE
     Dosage: UNK UKN, UNK
  14. TOPAMAX [Concomitant]
     Active Substance: TOPIRAMATE
     Dosage: UNK UKN, UNK
  15. MOTRIN [Concomitant]
     Active Substance: IBUPROFEN
     Dosage: UNK , TID
  16. GLUCOSAMINE [Concomitant]
     Active Substance: GLUCOSAMINE
     Dosage: UNK UKN, UNK
  17. ALVESCO [Concomitant]
     Active Substance: CICLESONIDE
     Dosage: UNK UKN, UNK
  18. EVISTA [Concomitant]
     Active Substance: RALOXIFENE HYDROCHLORIDE
     Dosage: UNK UKN, UNK

REACTIONS (4)
  - Rheumatoid arthritis [Unknown]
  - Neoplasm malignant [Unknown]
  - Dry eye [Unknown]
  - Drug effect decreased [Unknown]
